FAERS Safety Report 12441880 (Version 1)
Quarter: 2016Q2

REPORT INFORMATION
  Report Type: Spontaneous
  Country: CA (occurrence: CA)
  Receive Date: 20160607
  Receipt Date: 20160607
  Transmission Date: 20160815
  Serious: Yes (Death, Hospitalization)
  Sender: FDA-Public Use
  Company Number: CA-NOVOPROD-494421

PATIENT
  Age: 96 Year
  Sex: Female

DRUGS (1)
  1. NIASTASE RT [Suspect]
     Active Substance: COAGULATION FACTOR VIIA RECOMBINANT HUMAN
     Indication: CARDIAC OPERATION
     Dosage: 2 MG
     Route: 065
     Dates: start: 20160419

REACTIONS (3)
  - Arterial thrombosis [Fatal]
  - Off label use [Unknown]
  - Cerebrovascular accident [Fatal]

NARRATIVE: CASE EVENT DATE: 20160419
